FAERS Safety Report 7578029-4 (Version None)
Quarter: 2011Q2

REPORT INFORMATION
  Report Type: 
  Country: None (occurrence: None)
  Receive Date: 20110621
  Receipt Date: 20110606
  Transmission Date: 20111010
  Serious: Yes (Life-Threatening)
  Sender: FDA-Public Use
  Company Number: LTI2011A00146

PATIENT
  Age: 66 Year
  Sex: Male

DRUGS (4)
  1. PIOGLITAZONE HYDROCHLORIDE/METFORMIN HYDROCHLORIDE [Suspect]
     Indication: TYPE 2 DIABETES MELLITUS
     Dosage: 2 TAB. (1 TAB, 2 IN 1 D), ORAL
     Route: 048
     Dates: start: 20080410, end: 20080429
  2. TAREG (VALSARTAN) [Concomitant]
  3. METFORMIN HCL [Concomitant]
  4. ATORVASTATIN CALCIUM [Concomitant]

REACTIONS (1)
  - TRANSITIONAL CELL CARCINOMA [None]
